FAERS Safety Report 20053006 (Version 1)
Quarter: 2021Q4

REPORT INFORMATION
  Report Type: Spontaneous
  Country: IT (occurrence: IT)
  Receive Date: 20211110
  Receipt Date: 20211110
  Transmission Date: 20220303
  Serious: Yes (Other)
  Sender: FDA-Public Use
  Company Number: IT-JNJFOC-20211061118

PATIENT
  Age: 62 Year
  Sex: Female

DRUGS (4)
  1. DEXAMETHASONE [Suspect]
     Active Substance: DEXAMETHASONE
     Indication: Light chain disease
     Dosage: 1, 6 CYCLES
     Route: 065
     Dates: start: 2015
  2. DEXAMETHASONE [Suspect]
     Active Substance: DEXAMETHASONE
     Indication: Product use in unapproved indication
  3. CYCLOPHOSPHAMIDE [Suspect]
     Active Substance: CYCLOPHOSPHAMIDE
     Indication: Light chain disease
     Dosage: 1, 6 CYCLES
     Route: 065
     Dates: start: 2015
  4. VELCADE [Suspect]
     Active Substance: BORTEZOMIB
     Indication: Light chain disease
     Dosage: 1, 6 CYCLES
     Route: 065
     Dates: start: 2015

REACTIONS (5)
  - Syncope [Unknown]
  - Diarrhoea [Unknown]
  - Hyperglycaemia [Unknown]
  - Off label use [Unknown]
  - Product use in unapproved indication [Unknown]

NARRATIVE: CASE EVENT DATE: 20150501
